FAERS Safety Report 6793517-6 (Version None)
Quarter: 2010Q2

REPORT INFORMATION
  Report Type: 
  Country: None (occurrence: None)
  Receive Date: 20100624
  Receipt Date: 20100527
  Transmission Date: 20101027
  Serious: Yes (Death)
  Sender: FDA-Public Use
  Company Number: US-MYLANLABS-2010S1007481

PATIENT
  Age: 60 Year
  Sex: Male

DRUGS (13)
  1. CLOZAPINE [Suspect]
     Route: 048
     Dates: end: 20100101
  2. PULMICORT [Concomitant]
     Route: 055
     Dates: start: 20100201
  3. METOPROLOL [Concomitant]
  4. DIGOXIN [Concomitant]
  5. POTASSIUM [Concomitant]
  6. FUROSEMIDE [Concomitant]
  7. DIVALPROEX SODIUM EXTENDED RELEASE [Concomitant]
  8. SERTRALINE HCL [Concomitant]
  9. LEVOTHYROXINE [Concomitant]
  10. LIPITOR [Concomitant]
  11. KRISTALOSE [Concomitant]
  12. CIPRO [Concomitant]
     Dates: start: 20100201
  13. LORAZEPAM [Concomitant]
     Dates: start: 20100201

REACTIONS (1)
  - PNEUMONIA [None]
